FAERS Safety Report 13260090 (Version 1)
Quarter: 2017Q1

REPORT INFORMATION
  Report Type: Spontaneous
  Country: US (occurrence: US)
  Receive Date: 20170222
  Receipt Date: 20170222
  Transmission Date: 20170428
  Serious: No
  Sender: FDA-Public Use
  Company Number: US-TEVA-680758USA

PATIENT
  Sex: Female
  Weight: 65.38 kg

DRUGS (1)
  1. AMPHETAMINE W/DEXTROAMPHETAMINE [Suspect]
     Active Substance: AMPHETAMINE SULFATE\DEXTROAMPHETAMINE

REACTIONS (6)
  - Drug ineffective [Unknown]
  - Weight increased [Unknown]
  - Activities of daily living impaired [Unknown]
  - Psychomotor hyperactivity [Unknown]
  - Product substitution issue [Unknown]
  - Insomnia [Unknown]

NARRATIVE: CASE EVENT DATE: 2015
